FAERS Safety Report 10343577 (Version 2)
Quarter: 2014Q3

REPORT INFORMATION
  Report Type: Spontaneous
  Country: CA (occurrence: CA)
  Receive Date: 20140725
  Receipt Date: 20140923
  Transmission Date: 20150326
  Serious: Yes (Death, Life-Threatening, Other)
  Sender: FDA-Public Use
  Company Number: CA-ASTRAZENECA-2014SE53541

PATIENT
  Age: 84 Year
  Sex: Female

DRUGS (3)
  1. LIPITOR [Suspect]
     Active Substance: ATORVASTATIN CALCIUM
     Route: 065
  2. SEROQUEL [Suspect]
     Active Substance: QUETIAPINE FUMARATE
     Route: 048
  3. LYRICA [Suspect]
     Active Substance: PREGABALIN
     Route: 065

REACTIONS (11)
  - Arrhythmia [Unknown]
  - Dysstasia [Unknown]
  - Faecal incontinence [Unknown]
  - Asthenia [Unknown]
  - Convulsion [Unknown]
  - Haemoglobin decreased [Unknown]
  - Renal failure [Fatal]
  - Rhabdomyolysis [Unknown]
  - Pyrexia [Unknown]
  - Cardiac arrest [Unknown]
  - Chromaturia [Unknown]
